FAERS Safety Report 5585533-7 (Version None)
Quarter: 2008Q1

REPORT INFORMATION
  Report Type: 
  Country: None (occurrence: None)
  Receive Date: 20080109
  Receipt Date: 20080103
  Transmission Date: 20080703
  Serious: Yes (Other)
  Sender: FDA-Public Use
  Company Number: B0359751A

PATIENT
  Age: 25 Year
  Sex: Female

DRUGS (1)
  1. SEROXAT [Suspect]
     Route: 065
     Dates: start: 20000802

REACTIONS (8)
  - DEPRESSION [None]
  - DRUG WITHDRAWAL SYNDROME [None]
  - LETHARGY [None]
  - NAUSEA [None]
  - PARAESTHESIA [None]
  - SUICIDAL IDEATION [None]
  - SUICIDE ATTEMPT [None]
  - TREMOR [None]
